FAERS Safety Report 13416962 (Version 2)
Quarter: 2017Q2

REPORT INFORMATION
  Report Type: Report from Study
  Country: US (occurrence: US)
  Receive Date: 20170406
  Receipt Date: 20170512
  Transmission Date: 20170830
  Serious: Yes (Other)
  Sender: FDA-Public Use
  Company Number: US-JAZZ-2017-US-003690

PATIENT
  Age: 24 Year
  Sex: Male

DRUGS (2)
  1. XYREM [Suspect]
     Active Substance: SODIUM OXYBATE
     Dosage: UNK
  2. XYREM [Suspect]
     Active Substance: SODIUM OXYBATE
     Indication: INSOMNIA
     Dosage: 3 G, BID
     Route: 048
     Dates: start: 201703

REACTIONS (5)
  - Hyperhidrosis [Unknown]
  - Meniere^s disease [Not Recovered/Not Resolved]
  - Hypotension [Not Recovered/Not Resolved]
  - Thirst [Unknown]
  - Somnolence [Unknown]

NARRATIVE: CASE EVENT DATE: 201703
